FAERS Safety Report 8161532-6 (Version None)
Quarter: 2012Q1

REPORT INFORMATION
  Report Type: 
  Country: None (occurrence: None)
  Receive Date: 20120224
  Receipt Date: 20120216
  Transmission Date: 20120608
  Serious: Yes (Life-Threatening, Hospitalization)
  Sender: FDA-Public Use
  Company Number: RU-COVIDIEN/TYCO HEALTHCARE/MALLINCKRODT-T201200644

PATIENT
  Age: 62 Year
  Sex: Female

DRUGS (9)
  1. OPTIRAY 160 [Suspect]
     Indication: ANGIOGRAM
     Dosage: 80 ML, SINGLE
     Route: 013
     Dates: start: 20111223, end: 20111223
  2. NITROMINT [Concomitant]
     Indication: PAIN
     Dosage: DURING PAIN
  3. ATORIS [Concomitant]
     Dosage: 20 MG
  4. CLOPIDOGREL [Concomitant]
     Dosage: 75 MG X 1
  5. ASPIRIN [Concomitant]
     Dosage: 0.1 X 1
  6. PHENAZEPAM [Concomitant]
     Dosage: AT NIGHT
     Dates: start: 20111222, end: 20111222
  7. ENAP                               /00574902/ [Concomitant]
     Dosage: 5 MG X 2
  8. BISOPROLOL FUMARATE [Concomitant]
     Dosage: 2.5 MG X 1
  9. PROMEDOL [Concomitant]
     Dosage: 20 MG
     Dates: start: 20111223, end: 20111223

REACTIONS (6)
  - DIZZINESS [None]
  - RASH ERYTHEMATOUS [None]
  - HYPOTENSION [None]
  - TINNITUS [None]
  - DEPRESSED LEVEL OF CONSCIOUSNESS [None]
  - NAUSEA [None]
